FAERS Safety Report 7383227-9 (Version None)
Quarter: 2011Q1

REPORT INFORMATION
  Report Type: 
  Country: None (occurrence: None)
  Receive Date: 20110330
  Receipt Date: 20110318
  Transmission Date: 20110831
  Serious: Yes (Other)
  Sender: FDA-Public Use
  Company Number: CA-SANOFI-AVENTIS-2010SA076556

PATIENT
  Sex: Male

DRUGS (1)
  1. MULTAQ [Suspect]
     Indication: ATRIAL FIBRILLATION
     Route: 048
     Dates: start: 20101102, end: 20101102

REACTIONS (5)
  - MASTICATION DISORDER [None]
  - ASTHENIA [None]
  - DYSPNOEA [None]
  - MYASTHENIA GRAVIS [None]
  - HYPOTONIA [None]
